FAERS Safety Report 5534361-7 (Version None)
Quarter: 2007Q4

REPORT INFORMATION
  Report Type: 
  Country: None (occurrence: None)
  Receive Date: 20071130
  Receipt Date: 20071113
  Transmission Date: 20080405
  Serious: Yes (Death)
  Sender: FDA-Public Use
  Company Number: ADE2007-0047

PATIENT
  Age: 23 Week
  Sex: Male
  Weight: 0.56 kg

DRUGS (1)
  1. SERTRALINE HCL [Suspect]

REACTIONS (2)
  - DRUG EXPOSURE DURING PREGNANCY [None]
  - STILLBIRTH [None]
